FAERS Safety Report 9305146 (Version 1)
Quarter: 2013Q2

REPORT INFORMATION
  Report Type: Report from Study
  Country: BR (occurrence: BR)
  Receive Date: 20130523
  Receipt Date: 20130523
  Transmission Date: 20140414
  Serious: Yes (Other)
  Sender: FDA-Public Use
  Company Number: PHHY2013BR050668

PATIENT
  Sex: Female
  Weight: 25 kg

DRUGS (2)
  1. EXJADE [Suspect]
     Indication: THALASSAEMIA BETA
     Dosage: 1 DF, A DAY
  2. ANTIBIOTICS [Concomitant]
     Dosage: UNK UKN, UNK

REACTIONS (4)
  - Pain in extremity [Recovered/Resolved]
  - Pyrexia [Not Recovered/Not Resolved]
  - Oropharyngeal pain [Recovered/Resolved]
  - Haemoglobin decreased [Not Recovered/Not Resolved]
